FAERS Safety Report 14509677 (Version 1)
Quarter: 2018Q1

REPORT INFORMATION
  Report Type: Spontaneous
  Country: US (occurrence: US)
  Receive Date: 20180207
  Receipt Date: 20180207
  Transmission Date: 20180509
  Serious: Yes (Hospitalization)
  Sender: FDA-Public Use
  Company Number: None

PATIENT
  Age: 94 Year
  Sex: Male
  Weight: 74.3 kg

DRUGS (2)
  1. IOHEXOL [Suspect]
     Active Substance: IOHEXOL
     Indication: IMAGING PROCEDURE
     Route: 042
     Dates: start: 20171217, end: 20171217
  2. ASPIRIN. [Suspect]
     Active Substance: ASPIRIN
     Indication: CEREBROVASCULAR ACCIDENT PROPHYLAXIS
     Route: 048
     Dates: start: 20171217, end: 20171222

REACTIONS (5)
  - Rash erythematous [None]
  - Contrast media allergy [None]
  - Erythema multiforme [None]
  - Drug eruption [None]
  - Pruritus [None]

NARRATIVE: CASE EVENT DATE: 20171217
